FAERS Safety Report 20019066 (Version 1)
Quarter: 2021Q4

REPORT INFORMATION
  Report Type: Report from Study
  Country: JP (occurrence: JP)
  Receive Date: 20211101
  Receipt Date: 20211101
  Transmission Date: 20220303
  Serious: Yes (Hospitalization)
  Sender: FDA-Public Use
  Company Number: JP-BIOGEN-2021BI01062024

PATIENT
  Age: 55 Year
  Sex: Female
  Weight: 52 kg

DRUGS (5)
  1. TECFIDERA [Suspect]
     Active Substance: DIMETHYL FUMARATE
     Indication: Secondary progressive multiple sclerosis
     Route: 048
     Dates: start: 20180426, end: 20180502
  2. TECFIDERA [Suspect]
     Active Substance: DIMETHYL FUMARATE
     Route: 048
     Dates: start: 20180503, end: 20180509
  3. TECFIDERA [Suspect]
     Active Substance: DIMETHYL FUMARATE
     Dosage: DIVIDED INTO TWO DOSES OF 240 MG AND 120 MG
     Route: 048
     Dates: start: 20180510, end: 20180516
  4. TECFIDERA [Suspect]
     Active Substance: DIMETHYL FUMARATE
     Route: 048
     Dates: start: 20180517, end: 20180602
  5. ELDECALCITOL [Concomitant]
     Active Substance: ELDECALCITOL
     Indication: Secondary progressive multiple sclerosis
     Route: 048

REACTIONS (3)
  - Multiple sclerosis relapse [Recovered/Resolved]
  - Lymphocyte count decreased [Recovered/Resolved]
  - Therapeutic product effect incomplete [Unknown]

NARRATIVE: CASE EVENT DATE: 20180601
